FAERS Safety Report 11938960 (Version 2)
Quarter: 2016Q1

REPORT INFORMATION
  Report Type: Spontaneous
  Country: IT (occurrence: IT)
  Receive Date: 20160122
  Receipt Date: 20160207
  Transmission Date: 20160526
  Serious: Yes (Other)
  Sender: FDA-Public Use
  Company Number: IT-AMGEN-ITASP2016005605

PATIENT
  Age: 67 Year
  Sex: Female

DRUGS (8)
  1. GLUCOPHAGE [Concomitant]
     Active Substance: METFORMIN HYDROCHLORIDE
     Dosage: 1700 MG, UNK
  2. LIBRADIN                           /00338001/ [Concomitant]
     Dosage: 10 MG, UNK
  3. DIBASE [Concomitant]
     Active Substance: CHOLECALCIFEROL
     Dosage: 25000 IU IN THOUSANDS, UNK
  4. RANIBLOC [Concomitant]
     Dosage: 15 MG, UNK
  5. FASLODEX [Concomitant]
     Active Substance: FULVESTRANT
     Dosage: 250 MG, UNK
  6. XGEVA [Suspect]
     Active Substance: DENOSUMAB
     Indication: BREAST CANCER METASTATIC
     Dosage: 120 MG, CYCLICAL
     Route: 058
     Dates: start: 20130302, end: 20151020
  7. ZOMETA [Suspect]
     Active Substance: ZOLEDRONIC ACID
     Indication: BREAST CANCER METASTATIC
     Dosage: 4 MG, CYCLICAL
     Route: 042
     Dates: start: 20120501, end: 20130301
  8. COAPROVEL [Concomitant]
     Active Substance: HYDROCHLOROTHIAZIDE\IRBESARTAN
     Dosage: 300 MG, UNK

REACTIONS (2)
  - Tooth extraction [Unknown]
  - Osteonecrosis of jaw [Not Recovered/Not Resolved]

NARRATIVE: CASE EVENT DATE: 20150501
